FAERS Safety Report 8816109 (Version 1)
Quarter: 2012Q4

REPORT INFORMATION
  Report Type: 
  Country: IT (occurrence: IT)
  Receive Date: 20120929
  Receipt Date: 20120929
  Transmission Date: 20130627
  Serious: Yes (Hospitalization)
  Sender: FDA-Public Use
  Company Number: IT-B.I. PHARMACEUTICALS,INC./RIDGEFIELD-2012-EU-04769BY

PATIENT
  Age: 86 Year
  Sex: Male

DRUGS (12)
  1. PRITOR PLUS [Suspect]
     Dosage: 150 mg
     Route: 048
     Dates: start: 20120918, end: 20120918
  2. AMIODARONE [Concomitant]
  3. CARDIOASPIRIN [Concomitant]
  4. LASIX [Concomitant]
  5. ALDACTONE [Concomitant]
  6. NITRODERM TTS [Concomitant]
     Dosage: transdermal patch
  7. ESOPRAL [Concomitant]
  8. ZYLORIC [Concomitant]
  9. DELTACORTENE [Concomitant]
  10. KCL-RETARD [Concomitant]
  11. SPIRIVA [Concomitant]
  12. ALIFLUS [Concomitant]

REACTIONS (5)
  - Syncope [Recovered/Resolved]
  - Fall [Recovered/Resolved]
  - Laceration [Recovered/Resolved]
  - Contusion [Recovered/Resolved]
  - Accidental exposure to product [None]
